FAERS Safety Report 12868925 (Version 1)
Quarter: 2016Q4

REPORT INFORMATION
  Report Type: Report from Study
  Country: US (occurrence: US)
  Receive Date: 20161020
  Receipt Date: 20161020
  Transmission Date: 20170207
  Serious: Yes (Other)
  Sender: FDA-Public Use
  Company Number: US-AMGEN-USASL2016102028

PATIENT
  Age: 38 Year
  Sex: Female
  Weight: 63.95 kg

DRUGS (5)
  1. NOVOLIN [Concomitant]
     Active Substance: INSULIN HUMAN
     Dosage: 100 UNIT/ML, BID
  2. FLORINEF ACETATE [Concomitant]
     Active Substance: FLUDROCORTISONE ACETATE
     Dosage: 0.1 MG, BID
  3. METOPROLOL TARTRATE. [Concomitant]
     Active Substance: METOPROLOL TARTRATE
     Dosage: 25 MG, BID
  4. CORLANOR [Suspect]
     Active Substance: IVABRADINE HYDROCHLORIDE
     Indication: PRODUCT USED FOR UNKNOWN INDICATION
     Dosage: 5 MG, BID
     Route: 048
  5. SALT [Concomitant]
     Active Substance: SODIUM CHLORIDE
     Dosage: UNK TWO TO THREE TIME A DAY

REACTIONS (14)
  - Gastrooesophageal reflux disease [Unknown]
  - Syncope [Recovered/Resolved]
  - Presyncope [Unknown]
  - Palpitations [Unknown]
  - Musculoskeletal pain [Unknown]
  - Chest discomfort [Unknown]
  - Loss of consciousness [Unknown]
  - Fatigue [Unknown]
  - Off label use [Unknown]
  - Chest pain [Not Recovered/Not Resolved]
  - Pain in extremity [Unknown]
  - Dizziness [Not Recovered/Not Resolved]
  - Anxiety [Unknown]
  - Autonomic nervous system imbalance [Unknown]
